FAERS Safety Report 9325695 (Version 2)
Quarter: 2013Q2

REPORT INFORMATION
  Report Type: Spontaneous
  Country: IT (occurrence: IT)
  Receive Date: 20130604
  Receipt Date: 20130619
  Transmission Date: 20140414
  Serious: Yes (Other)
  Sender: FDA-Public Use
  Company Number: PHHY2013IT055213

PATIENT
  Age: 71 Year
  Sex: Female

DRUGS (9)
  1. EXELON PATCH [Suspect]
     Indication: DEMENTIA
     Dosage: 9.5 MG, DAILY
     Route: 062
     Dates: start: 20130520, end: 20130524
  2. VALSARTAN [Concomitant]
     Dosage: 80 MG, UNK
     Route: 048
  3. CITALOPRAM [Concomitant]
  4. PROVISACOR [Concomitant]
     Dosage: 10 MG, UNK
     Route: 048
  5. LANSOX [Concomitant]
  6. PRAZENE [Concomitant]
     Dosage: 20 MG, UNK
     Route: 048
  7. CARDICOR [Concomitant]
     Dosage: 5 MG, UNK
     Route: 048
  8. CARDIOASPIRIN [Concomitant]
  9. TRITTICO [Concomitant]
     Dosage: 10 DRP, UNK
     Route: 048

REACTIONS (2)
  - Cranial nerve paralysis [Recovering/Resolving]
  - Dyskinesia [Recovering/Resolving]
